FAERS Safety Report 16159687 (Version 1)
Quarter: 2019Q2

REPORT INFORMATION
  Report Type: Spontaneous
  Country: JP (occurrence: JP)
  Receive Date: 20190404
  Receipt Date: 20190404
  Transmission Date: 20190711
  Serious: Yes (Other)
  Sender: FDA-Public Use
  Company Number: JP-SHIRE-JP201909174AA

PATIENT

DRUGS (8)
  1. AGRYLIN [Suspect]
     Active Substance: ANAGRELIDE HYDROCHLORIDE
     Indication: ESSENTIAL THROMBOCYTHAEMIA
     Dosage: 1MG/DAY, UNKNOWN
     Route: 048
  2. ASPIRIN                            /00002701/ [Concomitant]
     Active Substance: ASPIRIN
     Indication: ESSENTIAL THROMBOCYTHAEMIA
     Dosage: 100 MILLIGRAM/DAY, UNKNOWN
     Route: 048
  3. AGRYLIN [Suspect]
     Active Substance: ANAGRELIDE HYDROCHLORIDE
     Dosage: 2MG/DAY, UNKNOWN
     Route: 048
  4. AGRYLIN [Suspect]
     Active Substance: ANAGRELIDE HYDROCHLORIDE
     Dosage: 2MG/DAY, UNKNOWN
     Route: 048
  5. HYDREA [Concomitant]
     Active Substance: HYDROXYUREA
     Dosage: 500MG/DAY, UNKNOWN
     Route: 065
  6. HYDREA [Concomitant]
     Active Substance: HYDROXYUREA
     Dosage: 1000MG/DAY, UNKNOWN
     Route: 065
  7. AGRYLIN [Suspect]
     Active Substance: ANAGRELIDE HYDROCHLORIDE
     Dosage: 3MG/DAY, UNKNOWN
     Route: 048
  8. HYDREA [Concomitant]
     Active Substance: HYDROXYUREA
     Indication: ESSENTIAL THROMBOCYTHAEMIA
     Dosage: 1500MG/DAY, UNKNOWN
     Route: 065

REACTIONS (7)
  - Epistaxis [Unknown]
  - Cardiac failure [Unknown]
  - Post procedural haemorrhage [Recovered/Resolved]
  - Coronary artery stenosis [Unknown]
  - Gingival bleeding [Unknown]
  - Adrenal thrombosis [Unknown]
  - Procedural haemorrhage [Recovered/Resolved]
